FAERS Safety Report 15603400 (Version 1)
Quarter: 2018Q4

REPORT INFORMATION
  Report Type: Report from Study
  Country: GB (occurrence: GB)
  Receive Date: 20181109
  Receipt Date: 20181109
  Transmission Date: 20190205
  Serious: Yes (Other)
  Sender: FDA-Public Use
  Company Number: GB-JNJFOC-20181106835

PATIENT
  Sex: Female

DRUGS (4)
  1. IRON [Concomitant]
     Active Substance: IRON
     Route: 065
  2. INSULIN [Concomitant]
     Active Substance: INSULIN NOS
     Route: 065
  3. STELARA [Suspect]
     Active Substance: USTEKINUMAB
     Indication: PSORIASIS
     Route: 058
     Dates: start: 20171108
  4. CARBIMAZOLE [Concomitant]
     Active Substance: CARBIMAZOLE
     Route: 065

REACTIONS (1)
  - Lower respiratory tract infection [Not Recovered/Not Resolved]

NARRATIVE: CASE EVENT DATE: 2018
